FAERS Safety Report 25481836 (Version 2)
Quarter: 2025Q3

REPORT INFORMATION
  Report Type: Spontaneous
  Country: EU (occurrence: EU)
  Receive Date: 20250626
  Receipt Date: 20250723
  Transmission Date: 20251020
  Serious: Yes (Hospitalization, Other)
  Sender: CATALYST PHARMA
  Company Number: EU-CATALYSTPHARMACEUTICALPARTNERS-AT-CATA-25-00871

PATIENT
  Age: 24 Year
  Sex: Male

DRUGS (4)
  1. FYCOMPA [Suspect]
     Active Substance: PERAMPANEL
     Indication: Partial seizures
     Dosage: 6.0 MILLIGRAM(S) (6 MILLIGRAM(S), 1 IN 1 DAY)
     Route: 048
     Dates: start: 201703
  2. FYCOMPA [Suspect]
     Active Substance: PERAMPANEL
     Dosage: 180.0 MILLIGRAM(S) (180 MILLIGRAM(S), 1 IN 1 DAY) - SUSPECTED OF HAVING TAKEN 30 X 6MG TABLETS AT ON
     Route: 048
     Dates: start: 20250617, end: 20250617
  3. LAMOTRIGINE [Concomitant]
     Active Substance: LAMOTRIGINE
     Indication: Partial seizures
     Dosage: 200.0 MILLIGRAM(S) (200 MILLIGRAM(S), 1 IN 1 DAY)
     Route: 065
     Dates: end: 20250617
  4. SERTRALINE [Concomitant]
     Active Substance: SERTRALINE HYDROCHLORIDE
     Indication: Depression
     Dosage: 50.0 MILLIGRAM(S) (50 MILLIGRAM(S), 1 IN 1 DAY)
     Route: 065
     Dates: end: 20250617

REACTIONS (5)
  - Disturbance in attention [Recovering/Resolving]
  - Drug withdrawal convulsions [Unknown]
  - Unresponsive to stimuli [Unknown]
  - Suspected suicide attempt [Unknown]
  - Intentional overdose [Unknown]

NARRATIVE: CASE EVENT DATE: 20250617
